FAERS Safety Report 9128622 (Version 1)
Quarter: 2013Q1

REPORT INFORMATION
  Report Type: Report from Study
  Country: US (occurrence: US)
  Receive Date: 20130125
  Receipt Date: 20130125
  Transmission Date: 20140127
  Serious: Yes (Hospitalization)
  Sender: FDA-Public Use
  Company Number: US-PFIZER INC-2013025223

PATIENT
  Age: 76 Year
  Sex: Male
  Weight: 75.28 kg

DRUGS (23)
  1. PF-04449913 [Suspect]
     Indication: MYELODYSPLASTIC SYNDROME
     Dosage: 200 MG, ONCE DAILY CONTINUES
     Route: 048
     Dates: start: 20121031
  2. CYTARABINE [Suspect]
     Indication: MYELODYSPLASTIC SYNDROME
     Dosage: 20 MG, TWICE DAILY ON DAYS 1-10 OF EACH 28-DAY CYCLE
     Route: 058
     Dates: start: 20121031
  3. BENADRYL [Concomitant]
     Indication: PREMEDICATION
     Dosage: 25 MG, PRN
     Route: 048
     Dates: start: 20121031
  4. TYLENOL [Concomitant]
     Indication: PREMEDICATION
     Dosage: 650 MG, PRN
     Route: 048
     Dates: start: 20121109
  5. TYLENOL [Concomitant]
     Dosage: 650 MG, PRN
     Route: 048
     Dates: start: 20121031
  6. PRBC TRANSFUSION [Concomitant]
     Indication: ANAEMIA
     Dosage: 2 UNITS X 1
     Route: 042
     Dates: start: 20121109, end: 20121109
  7. PRBC TRANSFUSION [Concomitant]
     Dosage: 2 UNITS, ONCE
     Route: 042
     Dates: start: 20121212, end: 20121212
  8. PRBC TRANSFUSION [Concomitant]
     Dosage: 2 UNITS ONCE
     Route: 042
     Dates: start: 20121031, end: 20121031
  9. NACL 0.9% [Concomitant]
     Indication: HYPOTENSION
     Dosage: 1000 ML X1
     Route: 042
     Dates: start: 20121212, end: 20121212
  10. PRBC^S [Concomitant]
     Indication: ANAEMIA
     Dosage: 2 UNITS, ONCE
     Route: 042
     Dates: start: 20121219, end: 20121219
  11. PRBC^S [Concomitant]
     Dosage: 2 UNITS, ONCE
     Route: 042
     Dates: start: 20121031, end: 20121031
  12. NORVASC [Concomitant]
     Indication: HYPERTENSION
     Dosage: 5 MG, DAILY
     Route: 048
     Dates: start: 201102
  13. AVODART [Concomitant]
     Indication: BENIGN PROSTATIC HYPERPLASIA
     Dosage: 0.5 MG, DAILY
     Route: 048
     Dates: start: 201103
  14. CLONIDINE [Concomitant]
     Indication: HYPERTENSION
     Dosage: 0.3-0.4 MG DAILY
     Route: 048
     Dates: start: 200603
  15. COLCRYS [Concomitant]
     Indication: GOUT
     Dosage: 0.6 MG, DAILY
     Route: 048
     Dates: start: 20121026
  16. ENALAPRIL [Concomitant]
     Indication: HYPERTENSION
     Dosage: 20 MG, BID
     Route: 048
     Dates: start: 200301
  17. PEPCID [Concomitant]
     Indication: GASTROOESOPHAGEAL REFLUX DISEASE
     Dosage: 20 MG, DAILY
     Route: 048
     Dates: start: 20121026
  18. FISH OIL [Concomitant]
     Indication: HYPERTENSION
     Dosage: 2000-3000 IU DAILY
     Route: 048
     Dates: start: 201203
  19. GLUCOSAMINE-CHONDROITIN [Concomitant]
     Indication: PROPHYLAXIS
     Dosage: 1500 CAPSULE, BID
     Route: 048
     Dates: start: 200606
  20. PREDNISONE [Concomitant]
     Indication: GOUT
     Dosage: 10 MG, DAILY
     Route: 048
     Dates: start: 20121026
  21. WELCHOL [Concomitant]
     Indication: IRRITABLE BOWEL SYNDROME
     Dosage: 3.75 MG, PRN
     Route: 048
     Dates: start: 199502
  22. ALLOPURINOL [Concomitant]
     Indication: GOUT
     Dosage: 200 MG, DAILY
     Route: 048
     Dates: start: 197507
  23. CALCIUM WITH VITAMIN D [Concomitant]
     Indication: VITAMIN SUPPLEMENTATION
     Dosage: 1 TAB DAILY
     Route: 048
     Dates: start: 201105

REACTIONS (1)
  - Dehydration [Not Recovered/Not Resolved]
